FAERS Safety Report 10691257 (Version 2)
Quarter: 2015Q1

REPORT INFORMATION
  Report Type: Report from Study
  Country: US (occurrence: US)
  Receive Date: 20150105
  Receipt Date: 20150105
  Transmission Date: 20150720
  Serious: Yes (Hospitalization)
  Sender: FDA-Public Use
  Company Number: US-ABBVIE-13P-163-1086813-00

PATIENT
  Age: 64 Year
  Sex: Male
  Weight: 68.1 kg

DRUGS (15)
  1. PEPCID [Concomitant]
     Active Substance: FAMOTIDINE
     Indication: PRODUCT USED FOR UNKNOWN INDICATION
  2. OTEZLA [Concomitant]
     Active Substance: APREMILAST
     Indication: PSORIASIS
  3. HUMIRA [Suspect]
     Active Substance: ADALIMUMAB
     Indication: PSORIATIC ARTHROPATHY
     Route: 065
     Dates: end: 201206
  4. LIPITOR [Concomitant]
     Active Substance: ATORVASTATIN CALCIUM
     Indication: BLOOD CHOLESTEROL
  5. FLOVENT [Concomitant]
     Active Substance: FLUTICASONE PROPIONATE
     Indication: CHRONIC OBSTRUCTIVE PULMONARY DISEASE
  6. OTEZLA [Concomitant]
     Active Substance: APREMILAST
     Indication: PSORIATIC ARTHROPATHY
     Dates: start: 2014
  7. OMEPRAZOLE. [Concomitant]
     Active Substance: OMEPRAZOLE
     Indication: GASTROOESOPHAGEAL REFLUX DISEASE
  8. VENLAFAXINE [Concomitant]
     Active Substance: VENLAFAXINE HYDROCHLORIDE
     Indication: DEPRESSION
  9. XANAX [Concomitant]
     Active Substance: ALPRAZOLAM
     Indication: ANXIETY
  10. IBUPROFEN. [Concomitant]
     Active Substance: IBUPROFEN
     Indication: PAIN
  11. AMBIEN [Concomitant]
     Active Substance: ZOLPIDEM TARTRATE
     Indication: INSOMNIA
     Dosage: AS NEEDED
  12. AMITRIPTYLINE [Concomitant]
     Active Substance: AMITRIPTYLINE
     Indication: PRODUCT USED FOR UNKNOWN INDICATION
  13. HUMIRA [Suspect]
     Active Substance: ADALIMUMAB
     Indication: PSORIASIS
     Route: 065
     Dates: start: 201304, end: 2014
  14. MOTRIN [Concomitant]
     Active Substance: IBUPROFEN
     Indication: PRODUCT USED FOR UNKNOWN INDICATION
  15. AMLODIPINE [Concomitant]
     Active Substance: AMLODIPINE BESYLATE
     Indication: HYPERTENSION

REACTIONS (21)
  - Diverticular perforation [Recovered/Resolved]
  - Peritonitis [Recovered/Resolved]
  - Intestinal obstruction [Recovered/Resolved]
  - Urticaria [Not Recovered/Not Resolved]
  - Urticaria chronic [Not Recovered/Not Resolved]
  - Abdominal distension [Recovered/Resolved]
  - Colostomy closure [Recovered/Resolved]
  - Rash [Recovered/Resolved]
  - Psychotic disorder [Recovered/Resolved]
  - Abdominal adhesions [Recovered/Resolved]
  - Abdominal pain [Recovered/Resolved]
  - Small intestinal obstruction [Recovered/Resolved]
  - Rash [Not Recovered/Not Resolved]
  - Infection [Recovered/Resolved]
  - Drug ineffective [Not Recovered/Not Resolved]
  - Abdominal pain [Recovered/Resolved]
  - Sepsis [Recovered/Resolved]
  - Intestinal obstruction [Recovered/Resolved]
  - Small intestinal obstruction [Recovered/Resolved]
  - Abdominal infection [Recovered/Resolved]
  - Urticaria [Recovered/Resolved]

NARRATIVE: CASE EVENT DATE: 201206
